FAERS Safety Report 13021325 (Version 1)
Quarter: 2016Q4

REPORT INFORMATION
  Report Type: Report from Study
  Country: US (occurrence: US)
  Receive Date: 20161213
  Receipt Date: 20161213
  Transmission Date: 20170207
  Serious: Yes (Other)
  Sender: FDA-Public Use
  Company Number: PHEH2016US031652

PATIENT
  Age: 68 Year
  Sex: Male

DRUGS (2)
  1. ENTRESTO [Suspect]
     Active Substance: SACUBITRIL\VALSARTAN
     Indication: CARDIAC FAILURE CONGESTIVE
     Dosage: 100 MG, BID
     Route: 048
     Dates: start: 20161201
  2. ENTRESTO [Suspect]
     Active Substance: SACUBITRIL\VALSARTAN
     Dosage: 0.5 DF, BID (CUTTING AND TAKING HALF OF 49/51 MG TABLET TWICE DAILY)
     Route: 065
     Dates: start: 20161202

REACTIONS (4)
  - Dizziness [Recovering/Resolving]
  - Loss of consciousness [Unknown]
  - Wrong technique in product usage process [Unknown]
  - Hypotension [Unknown]

NARRATIVE: CASE EVENT DATE: 20161201
